FAERS Safety Report 5192122-5 (Version None)
Quarter: 2006Q4

REPORT INFORMATION
  Report Type: 
  Country: None (occurrence: None)
  Receive Date: 20061220
  Receipt Date: 20061215
  Transmission Date: 20070319
  Serious: Yes (Death)
  Sender: FDA-Public Use
  Company Number: 233969

PATIENT
  Age: 88 Year
  Sex: Female

DRUGS (1)
  1. GRTPA (ALTEPLASE) PWDR + SOLVENT, INFUSION SOLN [Suspect]
     Indication: CEREBRAL ARTERY EMBOLISM
     Dosage: 13.22 MIU, SINGLE, INTRAVENOUS
     Route: 042
     Dates: start: 20061018, end: 20061018

REACTIONS (2)
  - HAEMORRHAGIC CEREBRAL INFARCTION [None]
  - PNEUMONIA ASPIRATION [None]
